FAERS Safety Report 6075266-5 (Version None)
Quarter: 2009Q1

REPORT INFORMATION
  Report Type: 
  Country: None (occurrence: None)
  Receive Date: 20090212
  Receipt Date: 20090203
  Transmission Date: 20090719
  Serious: Yes (Hospitalization, Other)
  Sender: FDA-Public Use
  Company Number: PHBS2009US00668

PATIENT
  Age: 71 Year
  Sex: Male

DRUGS (10)
  1. PAMIDRONATE DISODIUM [Suspect]
     Dosage: 20 MG
     Route: 042
     Dates: start: 20060701
  2. PAMIDRONATE DISODIUM [Suspect]
     Dosage: UNK
     Dates: start: 20060901
  3. PAMIDRONATE DISODIUM [Suspect]
     Dosage: UNK
  4. ACITRETIN [Concomitant]
  5. SERTRALINE [Concomitant]
  6. TRAZODONE HCL [Concomitant]
  7. OXYCODONE HCL [Concomitant]
  8. SEVELAMER [Concomitant]
  9. QUETIAPINE FUMARATE [Concomitant]
  10. PREDNISONE [Concomitant]
     Dosage: 40 MG DAILY
     Route: 048

REACTIONS (13)
  - ASTHENIA [None]
  - BLOOD 1,25-DIHYDROXYCHOLECALCIFEROL INCREASED [None]
  - BLOOD PARATHYROID HORMONE INCREASED [None]
  - CHRONIC LYMPHOCYTIC LEUKAEMIA [None]
  - CONSTIPATION [None]
  - DELIRIUM [None]
  - DRUG INEFFECTIVE [None]
  - HAEMODIALYSIS [None]
  - HYPERCALCAEMIA [None]
  - LYMPHADENOPATHY [None]
  - MALIGNANT NEOPLASM PROGRESSION [None]
  - SKIN HYPERPIGMENTATION [None]
  - VOMITING [None]
